FAERS Safety Report 8555689-2 (Version None)
Quarter: 2012Q3

REPORT INFORMATION
  Report Type: 
  Country: None (occurrence: None)
  Receive Date: 20120801
  Receipt Date: 20120727
  Transmission Date: 20120928
  Serious: Yes (Other)
  Sender: FDA-Public Use
  Company Number: US-AMGEN-USASP2012043785

PATIENT
  Age: 58 Year
  Sex: Female
  Weight: 111.57 kg

DRUGS (12)
  1. VITAMIN D [Concomitant]
     Dosage: UNK
  2. GLYBURIDE [Concomitant]
  3. COZAAR [Concomitant]
     Dosage: UNK UNK, QD
     Route: 048
  4. LASIX [Concomitant]
     Dosage: 40 MG, UNK
     Route: 048
  5. PROLIA [Suspect]
     Indication: OSTEOPOROSIS
     Dates: start: 20110823
  6. METFORMIN HYDROCHLORIDE [Concomitant]
     Dosage: 500 MG, BID
     Route: 048
  7. ALLEGRA [Concomitant]
     Dosage: 180 MG, UNK
  8. CENTRUM SILVER                     /01292501/ [Concomitant]
  9. LIPITOR [Concomitant]
     Dosage: 10 MG, UNK
     Route: 048
  10. MULTIVITAMIN                       /00097801/ [Concomitant]
  11. METOPROLOL SUCCINATE [Concomitant]
     Dosage: 100 MG, BID
     Route: 048
  12. FLONASE [Concomitant]
     Dosage: UNK UNK, QD
     Route: 055

REACTIONS (8)
  - NAUSEA [None]
  - CHEST PAIN [None]
  - TACHYCARDIA [None]
  - DYSPNOEA [None]
  - PULMONARY HYPERTENSION [None]
  - HEADACHE [None]
  - CHEST DISCOMFORT [None]
  - HYPERTENSION [None]
